FAERS Safety Report 10668418 (Version 1)
Quarter: 2014Q4

REPORT INFORMATION
  Report Type: Spontaneous
  Country: US (occurrence: US)
  Receive Date: 20141222
  Receipt Date: 20141222
  Transmission Date: 20150529
  Serious: Yes (Hospitalization)
  Sender: FDA-Public Use
  Company Number: US-BAYER-2014-184577

PATIENT
  Age: 73 Year
  Sex: Male
  Weight: 83 kg

DRUGS (9)
  1. CLOXACILLIN [Concomitant]
     Active Substance: CLOXACILLIN
     Indication: ERYSIPELAS
     Dosage: UNK
     Dates: start: 20141017, end: 20141024
  2. ESOMEPRAZOLE [Concomitant]
     Active Substance: ESOMEPRAZOLE
     Indication: GASTROOESOPHAGEAL REFLUX DISEASE
     Dosage: UNK
     Dates: start: 20140912
  3. SOTALOL. [Suspect]
     Active Substance: SOTALOL
     Indication: CARDIAC DISORDER
     Dosage: UNK
     Dates: start: 20140912
  4. PRAVASTATIN [Concomitant]
     Active Substance: PRAVASTATIN\PRAVASTATIN SODIUM
     Indication: MITRAL VALVE REPLACEMENT
     Dosage: DAILY DOSE 40 MG
     Dates: start: 2000
  5. SPIRIVA [Concomitant]
     Active Substance: TIOTROPIUM BROMIDE MONOHYDRATE
     Indication: OBSTRUCTION
     Dosage: DAILY DOSE 18 ?G
     Dates: start: 2013
  6. BURINEX [Suspect]
     Active Substance: BUMETANIDE
     Indication: OEDEMA
     Dosage: DAILY DOSE 2 MG
     Dates: start: 2011
  7. REVATIO [Suspect]
     Active Substance: SILDENAFIL CITRATE
     Indication: PULMONARY ARTERIAL HYPERTENSION
     Dosage: DAILY DOSE 60 MG
     Dates: start: 20130803
  8. METHOTREXATE [Concomitant]
     Active Substance: METHOTREXATE
     Indication: RHEUMATOID ARTHRITIS
     Dosage: 15 MG, OW
     Dates: start: 2004
  9. PREVISCAN [Concomitant]
     Active Substance: FLUINDIONE
     Indication: MITRAL VALVE REPLACEMENT
     Dosage: DAILY DOSE .5 MG
     Dates: start: 2000

REACTIONS (1)
  - Loss of consciousness [Recovered/Resolved]

NARRATIVE: CASE EVENT DATE: 20141019
